FAERS Safety Report 20647715 (Version 4)
Quarter: 2022Q2

REPORT INFORMATION
  Report Type: Spontaneous
  Country: US (occurrence: US)
  Receive Date: 20220329
  Receipt Date: 20220422
  Transmission Date: 20220720
  Serious: No
  Sender: FDA-Public Use
  Company Number: US-LUPIN PHARMACEUTICALS INC.-2022-04305

PATIENT
  Age: 45 Year
  Sex: Female
  Weight: 63.492 kg

DRUGS (2)
  1. SERTRALINE HYDROCHLORIDE [Suspect]
     Active Substance: SERTRALINE HYDROCHLORIDE
     Indication: Anxiety
     Dosage: 25 MG, QD (ONE YEAR AGO)
     Route: 048
     Dates: start: 2021
  2. SERTRALINE HYDROCHLORIDE [Suspect]
     Active Substance: SERTRALINE HYDROCHLORIDE
     Indication: Depression
     Dosage: 25 MG, QD (RECENT REFILL)
     Route: 048
     Dates: start: 20220203

REACTIONS (4)
  - Anxiety [Recovered/Resolved]
  - Depression [Recovered/Resolved]
  - Product colour issue [Unknown]
  - Paraesthesia [Recovered/Resolved]

NARRATIVE: CASE EVENT DATE: 20220203
